FAERS Safety Report 6354493-3 (Version None)
Quarter: 2009Q3

REPORT INFORMATION
  Report Type: 
  Country: None (occurrence: None)
  Receive Date: 20090910
  Receipt Date: 20090826
  Transmission Date: 20100115
  Serious: Yes (Other)
  Sender: FDA-Public Use
  Company Number: IND1-US-2009-0024

PATIENT
  Age: 65 Year
  Sex: Male

DRUGS (10)
  1. INDOCIN [Suspect]
     Indication: POLYARTHRITIS
     Dosage: 50 MG (3 IN 1 D)
  2. GLUCOPHAG (METFORMIN HYDROCHLORIDE) [Concomitant]
  3. GLUCOTROL [Concomitant]
  4. LOPRESSOR [Concomitant]
  5. ZOCOR [Concomitant]
  6. EFFEXOR [Concomitant]
  7. DEPAKOTE [Concomitant]
  8. ASPIRIN [Concomitant]
  9. ALLOPURINOL [Concomitant]
  10. DIURETICS [Concomitant]

REACTIONS (8)
  - ARTHRALGIA [None]
  - BLOOD GLUCOSE INCREASED [None]
  - BLOOD PRESSURE INCREASED [None]
  - CONDITION AGGRAVATED [None]
  - CRYSTAL ARTHROPATHY [None]
  - DRUG INEFFECTIVE [None]
  - HYPERURICAEMIA [None]
  - PROTEIN URINE PRESENT [None]
